FAERS Safety Report 10008516 (Version 1)
Quarter: 2014Q1

REPORT INFORMATION
  Report Type: Spontaneous
  Country: DK (occurrence: FR)
  Receive Date: 20140313
  Receipt Date: 20140313
  Transmission Date: 20141002
  Serious: Yes (Other)
  Sender: FDA-Public Use
  Company Number: FR-FRI-1000064616

PATIENT
  Sex: Male

DRUGS (2)
  1. ESCITALOPRAM [Suspect]
     Dates: start: 201110
  2. IMOVANE [Concomitant]
     Dates: start: 2011

REACTIONS (1)
  - Hepatocellular injury [Unknown]
